FAERS Safety Report 6550524-6 (Version None)
Quarter: 2010Q1

REPORT INFORMATION
  Report Type: 
  Country: None (occurrence: None)
  Receive Date: 20100125
  Receipt Date: 20100118
  Transmission Date: 20100710
  Serious: Yes (Other)
  Sender: FDA-Public Use
  Company Number: B0626598A

PATIENT
  Sex: Male

DRUGS (4)
  1. PAROXETINE HCL [Suspect]
     Indication: ANHEDONIA
     Dosage: 1UNIT PER DAY
     Route: 048
     Dates: start: 20091114, end: 20091116
  2. SERESTA 10 MG [Suspect]
     Indication: DRUG USE FOR UNKNOWN INDICATION
     Dosage: 30MG PER DAY
     Route: 048
  3. AOTAL [Suspect]
     Indication: DRUG USE FOR UNKNOWN INDICATION
     Dosage: 1998MG PER DAY
     Route: 048
  4. VITAMINE B1 B6 [Concomitant]
     Indication: VITAMIN B1 DEFICIENCY
     Dosage: 4UNIT PER DAY
     Route: 048

REACTIONS (1)
  - GASTROINTESTINAL DISORDER [None]
